FAERS Safety Report 8899008 (Version 1)
Quarter: 2012Q4

REPORT INFORMATION
  Report Type: 
  Country: US (occurrence: US)
  Receive Date: 20121108
  Receipt Date: 20121108
  Transmission Date: 20130627
  Serious: No
  Sender: FDA-Public Use
  Company Number: US-AMGEN-USASP2012033739

PATIENT
  Age: 61 Year
  Sex: Female

DRUGS (5)
  1. ENBREL [Suspect]
     Indication: PRODUCT USED FOR UNKNOWN INDICATION
     Dosage: 25 mg, 2 times/wk
     Dates: start: 200801
  2. DICLOFENAC [Concomitant]
     Dosage: UNK
  3. ALENDRONATE [Concomitant]
     Dosage: UNK
  4. NAZONEX [Concomitant]
     Dosage: UNK
  5. MULTIVITAMIN                       /00097801/ [Concomitant]
     Dosage: UNK

REACTIONS (3)
  - Skin disorder [Unknown]
  - Urticaria [Unknown]
  - Pruritus [Unknown]
